FAERS Safety Report 13820930 (Version 2)
Quarter: 2018Q1

REPORT INFORMATION
  Report Type: Spontaneous
  Country: JP (occurrence: JP)
  Receive Date: 20170801
  Receipt Date: 20180125
  Transmission Date: 20180508
  Serious: Yes (Hospitalization, Other)
  Sender: FDA-Public Use
  Company Number: JP-PFIZER INC-2017328633

PATIENT
  Age: 82 Year
  Sex: Male

DRUGS (9)
  1. LIPITOR [Concomitant]
     Active Substance: ATORVASTATIN CALCIUM
     Dosage: UNK
  2. BLOPRESS [Concomitant]
     Active Substance: CANDESARTAN CILEXETIL
     Dosage: 8 MG, DAILY
  3. SEIBULE [Suspect]
     Active Substance: MIGLITOL
     Indication: TYPE 2 DIABETES MELLITUS
     Dosage: 100 MG, 1X/DAY
     Route: 048
     Dates: end: 20150914
  4. SUINY [Suspect]
     Active Substance: ANAGLIPTIN
     Indication: TYPE 2 DIABETES MELLITUS
     Dosage: 100 MG, 2X/DAY
     Route: 048
     Dates: start: 20140410, end: 20150914
  5. BLOPRESS [Concomitant]
     Active Substance: CANDESARTAN CILEXETIL
     Dosage: 12 MG, DAILY
     Dates: start: 20040809
  6. PREDONINE [Suspect]
     Active Substance: PREDNISOLONE
     Indication: PROSTATE CANCER
  7. AMARYL [Concomitant]
     Active Substance: GLIMEPIRIDE
     Dosage: 1 MG, 2X/DAY
     Dates: start: 20090309, end: 20150914
  8. PLETAAL [Concomitant]
     Active Substance: CILOSTAZOL
     Dosage: 200 MG, DAILY
     Dates: start: 20050209
  9. PREDONINE [Suspect]
     Active Substance: PREDNISOLONE
     Indication: BLADDER CANCER
     Dosage: 10 MG, 1X/DAY
     Route: 065
     Dates: start: 201503

REACTIONS (2)
  - Blood glucose increased [Unknown]
  - Lacunar infarction [Recovering/Resolving]

NARRATIVE: CASE EVENT DATE: 201505
